FAERS Safety Report 25720314 (Version 1)
Quarter: 2025Q3

REPORT INFORMATION
  Report Type: Spontaneous
  Country: CN (occurrence: CN)
  Receive Date: 20250825
  Receipt Date: 20250825
  Transmission Date: 20251020
  Serious: Yes (Death, Hospitalization)
  Sender: Steriscience PTE
  Company Number: CN-STERISCIENCE B.V.-2025-ST-001443

PATIENT
  Age: 64 Year
  Sex: Male

DRUGS (12)
  1. MEROPENEM [Suspect]
     Active Substance: MEROPENEM
     Indication: Klebsiella infection
     Route: 065
  2. POLYMYXIN B [Suspect]
     Active Substance: POLYMYXIN B
     Indication: Klebsiella infection
     Route: 042
  3. POLYMYXIN B [Suspect]
     Active Substance: POLYMYXIN B
  4. POLYMYXIN B [Suspect]
     Active Substance: POLYMYXIN B
  5. POLYMYXIN B [Suspect]
     Active Substance: POLYMYXIN B
     Route: 042
  6. AVIBACTAM SODIUM\CEFTAZIDIME [Suspect]
     Active Substance: AVIBACTAM SODIUM\CEFTAZIDIME
     Indication: Klebsiella infection
     Route: 042
     Dates: end: 2022
  7. AVIBACTAM SODIUM\CEFTAZIDIME [Suspect]
     Active Substance: AVIBACTAM SODIUM\CEFTAZIDIME
     Route: 042
  8. AVIBACTAM SODIUM\CEFTAZIDIME [Suspect]
     Active Substance: AVIBACTAM SODIUM\CEFTAZIDIME
     Route: 065
  9. ZANUBRUTINIB [Concomitant]
     Active Substance: ZANUBRUTINIB
     Indication: Non-Hodgkin^s lymphoma
     Route: 065
  10. ZANUBRUTINIB [Concomitant]
     Active Substance: ZANUBRUTINIB
     Indication: Haemophagocytic lymphohistiocytosis
  11. OBINUTUZUMAB [Concomitant]
     Active Substance: OBINUTUZUMAB
     Indication: Non-Hodgkin^s lymphoma
     Route: 065
  12. OBINUTUZUMAB [Concomitant]
     Active Substance: OBINUTUZUMAB
     Indication: Haemophagocytic lymphohistiocytosis

REACTIONS (2)
  - Pathogen resistance [Fatal]
  - Condition aggravated [Fatal]

NARRATIVE: CASE EVENT DATE: 20220101
